FAERS Safety Report 4617231-8 (Version None)
Quarter: 2005Q1

REPORT INFORMATION
  Report Type: 
  Country: None (occurrence: None)
  Receive Date: 20050323
  Receipt Date: 20050310
  Transmission Date: 20050727
  Serious: Yes (Death, Hospitalization)
  Sender: FDA-Public Use
  Company Number: PHHO2005ES04067

PATIENT
  Age: 52 Year
  Sex: Female

DRUGS (3)
  1. CERL080A [Suspect]
     Indication: HEART TRANSPLANT
     Dosage: 2160 MG DAILY
     Route: 048
  2. CERL080A [Suspect]
     Dosage: UNK, UNK
     Route: 048
     Dates: end: 20050311
  3. NEORAL [Suspect]
     Indication: HEART TRANSPLANT
     Dosage: 75 MG, BID
     Dates: start: 20031113, end: 20050316

REACTIONS (7)
  - ANAEMIA [None]
  - BLOOD CREATININE INCREASED [None]
  - CONFUSIONAL STATE [None]
  - HERPES VIRUS INFECTION [None]
  - LOSS OF CONSCIOUSNESS [None]
  - NEUROTOXICITY [None]
  - RENAL FAILURE ACUTE [None]
